FAERS Safety Report 16561261 (Version 2)
Quarter: 2019Q3

REPORT INFORMATION
  Report Type: Spontaneous
  Country: IT (occurrence: IT)
  Receive Date: 20190711
  Receipt Date: 20190802
  Transmission Date: 20191004
  Serious: Yes (Other)
  Sender: FDA-Public Use
  Company Number: IT-PFIZER INC-2019295344

PATIENT
  Age: 60 Year
  Sex: Female

DRUGS (6)
  1. NALOXONE/OXYCODONE [Concomitant]
     Dosage: 5 MG, UNK
  2. PANTOPRAZOLO [Concomitant]
     Active Substance: PANTOPRAZOLE SODIUM
     Dosage: 20 MG, DAILY
  3. FUROSEMIDE/SPIRONOLACTONE [Concomitant]
     Dosage: UNK (25+37 MG)
  4. CRIZOTINIB [Suspect]
     Active Substance: CRIZOTINIB
     Indication: LUNG ADENOCARCINOMA STAGE IV
     Dosage: 250 MG, 2X/DAY
     Dates: start: 201810
  5. CRIZOTINIB [Suspect]
     Active Substance: CRIZOTINIB
     Dosage: 200 MG, 2X/DAY
     Dates: start: 201812
  6. NADROPARINA [Concomitant]
     Dosage: 11400 IU, DAILY

REACTIONS (11)
  - Neoplasm progression [Unknown]
  - Gamma-glutamyltransferase increased [Unknown]
  - Pulmonary embolism [Unknown]
  - Alanine aminotransferase increased [Recovered/Resolved]
  - Gravitational oedema [Recovered/Resolved]
  - Aspartate aminotransferase increased [Recovered/Resolved]
  - Asthenia [Unknown]
  - Activated partial thromboplastin time prolonged [Unknown]
  - Diarrhoea [Recovered/Resolved]
  - Blood lactate dehydrogenase increased [Unknown]
  - Blood albumin decreased [Unknown]

NARRATIVE: CASE EVENT DATE: 20181010
